FAERS Safety Report 5742821-9 (Version None)
Quarter: 2008Q2

REPORT INFORMATION
  Report Type: 
  Country: None (occurrence: None)
  Receive Date: 20080515
  Receipt Date: 20080515
  Transmission Date: 20081010
  Serious: Yes (Hospitalization)
  Sender: FDA-Public Use
  Company Number: None

PATIENT
  Age: 85 Year
  Sex: Male
  Weight: 59.18 kg

DRUGS (1)
  1. PHENYTOIN [Suspect]
     Indication: CONVULSION
     Dosage: 400 MG EVERY DAY PO
     Route: 048
     Dates: start: 19990726, end: 20071220

REACTIONS (3)
  - CONFUSIONAL STATE [None]
  - DRUG TOXICITY [None]
  - LETHARGY [None]
